FAERS Safety Report 10051913 (Version 1)
Quarter: 2014Q2

REPORT INFORMATION
  Report Type: Spontaneous
  Country: US (occurrence: US)
  Receive Date: 20140402
  Receipt Date: 20140402
  Transmission Date: 20141212
  Serious: Yes (Other)
  Sender: FDA-Public Use
  Company Number: US-BIOGENIDEC-2014BI029512

PATIENT
  Sex: Male

DRUGS (1)
  1. AVONEX [Suspect]
     Indication: MULTIPLE SCLEROSIS
     Route: 030
     Dates: start: 20010816

REACTIONS (4)
  - Pneumonia aspiration [Recovered/Resolved]
  - Dysphagia [Not Recovered/Not Resolved]
  - Hypersensitivity [Recovered/Resolved]
  - Drug hypersensitivity [Recovered/Resolved]
